FAERS Safety Report 9996541 (Version 2)
Quarter: 2015Q3

REPORT INFORMATION
  Report Type: Spontaneous
  Country: US (occurrence: US)
  Receive Date: 20140311
  Receipt Date: 20150721
  Transmission Date: 20151125
  Serious: Yes (Other)
  Sender: FDA-Public Use
  Company Number: US-GILEAD-2012-0054233

PATIENT
  Age: 19 Year
  Sex: Female

DRUGS (3)
  1. VISTIDE [Suspect]
     Active Substance: CIDOFOVIR
     Dosage: 1 MG/KG, Q1WK
  2. VISTIDE [Suspect]
     Active Substance: CIDOFOVIR
     Indication: VIRAL HAEMORRHAGIC CYSTITIS
     Dosage: .5 MG/KG, Q1WK
  3. VISTIDE [Suspect]
     Active Substance: CIDOFOVIR
     Dosage: 1 MG/KG, Q3WK
     Dates: end: 201202

REACTIONS (1)
  - Fanconi syndrome [Not Recovered/Not Resolved]
